FAERS Safety Report 13052013 (Version 1)
Quarter: 2016Q4

REPORT INFORMATION
  Report Type: Spontaneous
  Country: US (occurrence: US)
  Receive Date: 20161221
  Receipt Date: 20161221
  Transmission Date: 20170207
  Serious: Yes (Other)
  Sender: FDA-Public Use
  Company Number: US-PFIZER INC-2016580339

PATIENT
  Age: 69 Year
  Sex: Female

DRUGS (18)
  1. FLONASE [Concomitant]
     Active Substance: FLUTICASONE PROPIONATE
     Dosage: UNK UNK, 2X/DAY (2 SPRAYS BID/PRN)
     Dates: start: 20160606
  2. TORSEMIDE. [Concomitant]
     Active Substance: TORSEMIDE
     Dosage: 20 MG, ALTERNATE DAY (QOD)
     Dates: start: 20160519
  3. ANUCORT-HC [Concomitant]
     Active Substance: HYDROCORTISONE ACETATE
     Dosage: 25 MG, AS NEEDED
  4. CORTISONE [Concomitant]
     Active Substance: CORTISONE\HYDROCORTISONE
     Indication: BURSITIS
     Dosage: UNK UNK, EVERY 3 MONTHS (R KNEE QUARTERLY)
  5. PRISTIQ EXTENDED-RELEASE [Suspect]
     Active Substance: DESVENLAFAXINE SUCCINATE
     Dosage: 50 MG, 1X/DAY (1 TAB AM)
  6. PENTASA [Concomitant]
     Active Substance: MESALAMINE
     Dosage: 250 MG, 3X/DAY
     Dates: start: 201502
  7. ALLOPURINOL. [Concomitant]
     Active Substance: ALLOPURINOL
     Dosage: 100 MG, 1X/DAY (AM)
  8. COLACE [Concomitant]
     Active Substance: DOCUSATE SODIUM
     Dosage: 100 MG, 1X/DAY (HS)
  9. NEXIUM [Concomitant]
     Active Substance: ESOMEPRAZOLE MAGNESIUM
     Dosage: 40 MG, 1X/DAY (AM)
     Dates: start: 201304
  10. CARVEDILOL. [Concomitant]
     Active Substance: CARVEDILOL
     Dosage: 6.25 MG, 2X/DAY
     Dates: start: 2012
  11. ZOLPIDEM TARTRATE. [Concomitant]
     Active Substance: ZOLPIDEM TARTRATE
     Dosage: 10 MG, 1X/DAY (HS)
     Dates: start: 2001
  12. LYRICA [Suspect]
     Active Substance: PREGABALIN
     Dosage: 300 MG, DAILY (1 CAP(S) SIX TIMES PER DAY AS DIRECTED, 1 TO 6 CAPS)
     Route: 048
  13. CYCLOBENZAPRINE [Concomitant]
     Active Substance: CYCLOBENZAPRINE
     Dosage: 5 MG, 3X/DAY
     Dates: start: 2013
  14. CHLORDIAZEPOXIDE HYDROCHLORIDE AND CLIDINIUM [Concomitant]
     Dosage: 1 DF, 1X/DAY (HS)
     Dates: start: 201311
  15. BENTYL [Concomitant]
     Active Substance: DICYCLOMINE HYDROCHLORIDE
     Dosage: 5 MG, 3X/DAY (1/2 TAB)
     Dates: start: 201605
  16. CLARITIN [Concomitant]
     Active Substance: LORATADINE
     Dosage: 10 MG, 1X/DAY (AM)
     Dates: start: 201102
  17. CORTISONE [Concomitant]
     Active Substance: CORTISONE\HYDROCORTISONE
     Indication: ARTHRITIS
  18. VENTOLIN HFA [Concomitant]
     Active Substance: ALBUTEROL SULFATE
     Dosage: UNK UNK, 4X/DAY (1 TO 2 PUFFS Q 6 HRS)
     Dates: start: 2015

REACTIONS (11)
  - Intervertebral disc degeneration [Unknown]
  - Oesophageal hypomotility [Unknown]
  - Fibromyalgia [Unknown]
  - Neuropathy peripheral [Unknown]
  - Diverticulum [Unknown]
  - Irritable bowel syndrome [Unknown]
  - Arthritis [Unknown]
  - Bursitis [Unknown]
  - Colitis microscopic [Unknown]
  - Autonomic nervous system imbalance [Unknown]
  - Gout [Unknown]
